FAERS Safety Report 19329182 (Version 11)
Quarter: 2023Q2

REPORT INFORMATION
  Report Type: Report from Study
  Country: CA (occurrence: CA)
  Receive Date: 20210528
  Receipt Date: 20230621
  Transmission Date: 20230721
  Serious: Yes (Hospitalization, Other)
  Sender: FDA-Public Use
  Company Number: CA-PFIZER INC-2021581506

PATIENT
  Age: 12 Year
  Sex: Male
  Weight: 45 kg

DRUGS (53)
  1. METHOTREXATE SODIUM [Suspect]
     Active Substance: METHOTREXATE SODIUM
     Dosage: 25 MG, WEEKLY
     Route: 058
  2. METHOTREXATE SODIUM [Suspect]
     Active Substance: METHOTREXATE SODIUM
     Dosage: 15 MG, CYCLIC (EVERY 2 DAYS)
     Route: 058
  3. METHOTREXATE SODIUM [Suspect]
     Active Substance: METHOTREXATE SODIUM
     Dosage: 20 MG
     Route: 058
  4. ACTEMRA [Suspect]
     Active Substance: TOCILIZUMAB
     Indication: Still^s disease
     Dosage: 281 MG, CYCLIC (EVERY 2 WEEKS)
     Route: 042
  5. ACTEMRA [Suspect]
     Active Substance: TOCILIZUMAB
     Dosage: 281 MG, 1 EVERY 2 WEEKS
     Route: 042
  6. ACTEMRA [Suspect]
     Active Substance: TOCILIZUMAB
     Dosage: 286 MG, 1 EVERY 2 WEEKS
     Route: 042
  7. ACTEMRA [Suspect]
     Active Substance: TOCILIZUMAB
     Dosage: 286 MG, 1 EVERY 2 WEEKS
     Route: 042
  8. ACTEMRA [Suspect]
     Active Substance: TOCILIZUMAB
     Dosage: 286 MG, 1 EVERY 2 WEEKS
     Route: 042
  9. ACTEMRA [Suspect]
     Active Substance: TOCILIZUMAB
     Dosage: 281 MG, 1 EVERY 2 WEEKS
     Route: 042
  10. ACTEMRA [Suspect]
     Active Substance: TOCILIZUMAB
     Dosage: 320 MG, 1 EVERY 2 WEEKS
     Route: 042
  11. ACTEMRA [Suspect]
     Active Substance: TOCILIZUMAB
     Dosage: 286 MG, 1 EVERY 2 WEEKS
     Route: 042
  12. ACTEMRA [Suspect]
     Active Substance: TOCILIZUMAB
     Dosage: 281 MG, 1 EVERY 2 WEEKS
     Route: 042
  13. ACTEMRA [Suspect]
     Active Substance: TOCILIZUMAB
     Dosage: 286 MG, 1 EVERY 2 WEEKS
     Route: 042
  14. ACTEMRA [Suspect]
     Active Substance: TOCILIZUMAB
     Dosage: 320 MG, 1 EVERY 2 WEEKS
     Route: 042
  15. ACTEMRA [Suspect]
     Active Substance: TOCILIZUMAB
     Dosage: 281 MG, 1 EVERY 2 WEEKS
     Route: 042
  16. ACTEMRA [Suspect]
     Active Substance: TOCILIZUMAB
     Dosage: 286 MG, 1 EVERY 2 WEEKS
     Route: 042
  17. ACTEMRA [Suspect]
     Active Substance: TOCILIZUMAB
     Dosage: 286 MG, 1 EVERY 2 WEEKS
     Route: 042
  18. ACTEMRA [Suspect]
     Active Substance: TOCILIZUMAB
     Dosage: 351 MG, 1 EVERY 2 WEEKS
     Route: 042
  19. ACTEMRA [Suspect]
     Active Substance: TOCILIZUMAB
     Indication: Still^s disease
     Dosage: 281 MG, CYCLIC (EVERY 2 WEEKS)
     Route: 042
  20. ACTEMRA [Suspect]
     Active Substance: TOCILIZUMAB
     Dosage: 281 MG, CYCLIC (EVERY 2 WEEKS)
     Route: 042
  21. ACTEMRA [Suspect]
     Active Substance: TOCILIZUMAB
     Dosage: 286 MG, CYCLIC (EVERY 2 WEEKS)
     Route: 042
  22. ACTEMRA [Suspect]
     Active Substance: TOCILIZUMAB
     Dosage: 286 MG, CYCLIC (EVERY 2 WEEKS)
     Route: 042
  23. ACTEMRA [Suspect]
     Active Substance: TOCILIZUMAB
     Dosage: 281 MG, CYCLIC (EVERY 2 WEEKS)
     Route: 042
  24. ACTEMRA [Suspect]
     Active Substance: TOCILIZUMAB
     Dosage: 286 MG, CYCLIC (EVERY 2 WEEKS)
     Route: 042
  25. ACTEMRA [Suspect]
     Active Substance: TOCILIZUMAB
     Dosage: 286 MG, CYCLIC (EVERY 2 WEEKS)
     Route: 042
  26. ACTEMRA [Suspect]
     Active Substance: TOCILIZUMAB
     Dosage: 320 MG, CYCLIC (EVERY 2 WEEKS)
     Route: 042
  27. ACTEMRA [Suspect]
     Active Substance: TOCILIZUMAB
     Dosage: 281 MG, CYCLIC (EVERY 2 WEEKS)
     Route: 042
  28. ACTEMRA [Suspect]
     Active Substance: TOCILIZUMAB
     Dosage: 286 MG, CYCLIC (EVERY 2 WEEKS)
     Route: 042
  29. ACTEMRA [Suspect]
     Active Substance: TOCILIZUMAB
     Dosage: 351 MG, CYCLIC (EVERY 2 WEEKS)
     Route: 042
  30. ACTEMRA [Suspect]
     Active Substance: TOCILIZUMAB
     Dosage: 320 MG, CYCLIC (EVERY 2 WEEKS)
     Route: 042
  31. ACTEMRA [Suspect]
     Active Substance: TOCILIZUMAB
     Dosage: 286 MG, CYCLIC (EVERY 2 WEEKS)
     Route: 042
  32. ACTEMRA [Suspect]
     Active Substance: TOCILIZUMAB
     Dosage: 351 MG, CYCLIC (EVERY 2 WEEKS)
     Route: 042
  33. ACTEMRA [Suspect]
     Active Substance: TOCILIZUMAB
     Dosage: 405 MG, CYCLIC (EVERY 2 WEEKS)
     Route: 042
  34. ACTEMRA [Suspect]
     Active Substance: TOCILIZUMAB
     Dosage: 435 MG, CYCLIC (EVERY 2 WEEKS)
     Route: 042
  35. ACTEMRA [Suspect]
     Active Substance: TOCILIZUMAB
     Dosage: 405 MG, CYCLIC (EVERY 2 WEEKS)
     Route: 042
  36. ACTEMRA [Suspect]
     Active Substance: TOCILIZUMAB
     Dosage: 281 MG, CYCLIC (EVERY 2 WEEKS)
     Route: 042
  37. ACTEMRA [Suspect]
     Active Substance: TOCILIZUMAB
     Dosage: 480 MG,  1 EVERY 2 WEEKS
     Route: 042
  38. ACTEMRA [Suspect]
     Active Substance: TOCILIZUMAB
     Dosage: 500 MG, 1 EVERY 4 WEEKS
     Route: 042
  39. ACTEMRA [Suspect]
     Active Substance: TOCILIZUMAB
     Dosage: 435 MG, 1 EVERY 2 WEEKS
     Route: 042
  40. ACTEMRA [Suspect]
     Active Substance: TOCILIZUMAB
     Dosage: 500 MG, 1 EVERY 2 WEEKS
     Route: 042
  41. ACTEMRA [Suspect]
     Active Substance: TOCILIZUMAB
     Dosage: 480 MG, 1 EVERY 2 WEEKS
     Route: 042
  42. FOLIC ACID [Concomitant]
     Active Substance: FOLIC ACID
     Dosage: UNK
     Route: 065
  43. PREDNISONE [Concomitant]
     Active Substance: PREDNISONE
     Dosage: UNK
  44. PREVACID [Concomitant]
     Active Substance: LANSOPRAZOLE
     Dosage: UNK
  45. STRATTERA [Concomitant]
     Active Substance: ATOMOXETINE HYDROCHLORIDE
     Dosage: 36 MG
     Route: 065
  46. STRATTERA [Concomitant]
     Active Substance: ATOMOXETINE HYDROCHLORIDE
     Dosage: 36 MG
     Route: 065
  47. STRATTERA [Concomitant]
     Active Substance: ATOMOXETINE HYDROCHLORIDE
     Dosage: 43 MG
     Route: 065
  48. VENTOLIN [Concomitant]
     Active Substance: ALBUTEROL SULFATE
     Indication: Cough
     Dosage: UNK
     Route: 055
  49. VENTOLIN [Concomitant]
     Active Substance: ALBUTEROL SULFATE
     Indication: Bronchitis
  50. ZOFRAN [Concomitant]
     Active Substance: ONDANSETRON HYDROCHLORIDE
     Indication: Premedication
     Dosage: UNK
     Route: 065
  51. BENADRYL [Concomitant]
     Active Substance: DIPHENHYDRAMINE HYDROCHLORIDE
     Indication: Premedication
     Dosage: UNK
     Route: 065
  52. BENADRYL [Concomitant]
     Active Substance: DIPHENHYDRAMINE HYDROCHLORIDE
     Dosage: 50 MG
     Route: 048
  53. COVID-19 VACCINE [Concomitant]
     Dosage: UNK
     Route: 065

REACTIONS (21)
  - Hallucination [Not Recovered/Not Resolved]
  - Oesophageal spasm [Not Recovered/Not Resolved]
  - Arthralgia [Not Recovered/Not Resolved]
  - Blood pressure diastolic abnormal [Not Recovered/Not Resolved]
  - Blood pressure diastolic decreased [Not Recovered/Not Resolved]
  - Blood pressure diastolic increased [Not Recovered/Not Resolved]
  - Bronchitis [Not Recovered/Not Resolved]
  - Chest pain [Not Recovered/Not Resolved]
  - Cough [Not Recovered/Not Resolved]
  - Heart rate increased [Not Recovered/Not Resolved]
  - Hypotension [Not Recovered/Not Resolved]
  - Nasopharyngitis [Not Recovered/Not Resolved]
  - Nausea [Not Recovered/Not Resolved]
  - Oropharyngeal pain [Not Recovered/Not Resolved]
  - Oxygen saturation decreased [Not Recovered/Not Resolved]
  - Rash [Not Recovered/Not Resolved]
  - Spinal disorder [Not Recovered/Not Resolved]
  - Tonsillar haemorrhage [Not Recovered/Not Resolved]
  - Weight increased [Not Recovered/Not Resolved]
  - Product prescribing error [Not Recovered/Not Resolved]
  - Off label use [Not Recovered/Not Resolved]
